FAERS Safety Report 7715538-9 (Version None)
Quarter: 2011Q3

REPORT INFORMATION
  Report Type: 
  Country: None (occurrence: None)
  Receive Date: 20110810
  Receipt Date: 20110506
  Transmission Date: 20111222
  Serious: No
  Sender: FDA-Public Use
  Company Number: 1000020769

PATIENT
  Age: 58 Year
  Sex: Male

DRUGS (4)
  1. BENICAR [Concomitant]
  2. SAVELLA [Suspect]
     Indication: FIBROMYALGIA
     Dosage: 12.5 MG (12.5 MG, 1 IN 1 D), ORAL,  25 MG (12.5 MG, 2 IN 1 D), ORAL
     Route: 048
     Dates: start: 20110301, end: 20110301
  3. SAVELLA [Suspect]
     Indication: FIBROMYALGIA
     Dosage: 12.5 MG (12.5 MG, 1 IN 1 D), ORAL,  25 MG (12.5 MG, 2 IN 1 D), ORAL
     Route: 048
     Dates: start: 20110304, end: 20110301
  4. PRILOSEC (OMEPRAZOLE) (OMEPRAZOLE) [Concomitant]

REACTIONS (1)
  - DYSURIA [None]
